FAERS Safety Report 9679078 (Version 9)
Quarter: 2017Q1

REPORT INFORMATION
  Report Type: Report from Study
  Country: GB (occurrence: GB)
  Receive Date: 20131108
  Receipt Date: 20170221
  Transmission Date: 20170429
  Serious: Yes (Hospitalization)
  Sender: FDA-Public Use
  Company Number: GB-ROCHE-1072928

PATIENT
  Age: 65 Year
  Sex: Female
  Weight: 85 kg

DRUGS (21)
  1. DALTEPARIN [Concomitant]
     Active Substance: DALTEPARIN
     Indication: DEEP VEIN THROMBOSIS
  2. METOCLOPRAMIDE. [Concomitant]
     Active Substance: METOCLOPRAMIDE
     Indication: NAUSEA
     Route: 065
     Dates: start: 20120523
  3. FOLIC ACID. [Concomitant]
     Active Substance: FOLIC ACID
     Indication: PROPHYLAXIS
  4. ACYCLOVIR. [Concomitant]
     Active Substance: ACYCLOVIR
     Indication: ANTIVIRAL PROPHYLAXIS
     Route: 065
     Dates: start: 20120523, end: 201208
  5. LACTULOSE. [Concomitant]
     Active Substance: LACTULOSE
     Route: 065
     Dates: start: 20120526, end: 20120529
  6. SENNA [Concomitant]
     Active Substance: SENNA LEAF\SENNOSIDES\SENNOSIDES A AND B
     Route: 065
     Dates: start: 20120526, end: 20120529
  7. BENDAMUSTINE [Suspect]
     Active Substance: BENDAMUSTINE
     Indication: NON-HODGKIN^S LYMPHOMA
     Dosage: DATE OF MOST RECENT DOSE OF BENDAMUSTINE PRIOR TO SAE ONSET: 25/MAY/2012?DATE OF MOST RECENT DOSE OF
     Route: 042
     Dates: start: 20120523
  8. DALTEPARIN [Concomitant]
     Active Substance: DALTEPARIN
     Indication: PROPHYLAXIS
     Route: 065
     Dates: start: 20120518, end: 20120601
  9. ALLOPURINOL. [Concomitant]
     Active Substance: ALLOPURINOL
     Route: 065
     Dates: start: 20120517, end: 201208
  10. GENTAMICIN. [Concomitant]
     Active Substance: GENTAMICIN
     Indication: PYREXIA
     Route: 065
     Dates: start: 20120528, end: 20120529
  11. IBUPROFEN. [Concomitant]
     Active Substance: IBUPROFEN
     Indication: ANALGESIC THERAPY
     Route: 065
     Dates: end: 20120521
  12. FOLIC ACID. [Concomitant]
     Active Substance: FOLIC ACID
     Indication: HAEMOLYSIS
     Route: 065
     Dates: start: 20120518
  13. DALTEPARIN [Concomitant]
     Active Substance: DALTEPARIN
     Indication: PULMONARY EMBOLISM
  14. PREDNISOLONE. [Suspect]
     Active Substance: PREDNISOLONE
     Indication: NON-HODGKIN^S LYMPHOMA
     Dosage: DATE OF MOST RECENT DOSE PRIOR TO SAE : 23/MAY/2012, DOSE OF LAST STUDY DRUG ADMINISTERED: 100 MG
     Route: 048
  15. LACTULOSE. [Concomitant]
     Active Substance: LACTULOSE
     Indication: CONSTIPATION
     Route: 065
     Dates: start: 20120525, end: 20120601
  16. SENNA [Concomitant]
     Active Substance: SENNA LEAF\SENNOSIDES\SENNOSIDES A AND B
     Indication: CONSTIPATION
     Route: 065
     Dates: start: 20120525
  17. AUGMENTIN [Concomitant]
     Active Substance: AMOXICILLIN\CLAVULANATE POTASSIUM
     Indication: ESCHERICHIA URINARY TRACT INFECTION
     Route: 065
     Dates: start: 20120526, end: 20120601
  18. TAZOCIN [Concomitant]
     Active Substance: PIPERACILLIN SODIUM\TAZOBACTAM SODIUM
     Indication: PYREXIA
     Route: 065
     Dates: start: 20120528, end: 20120529
  19. PLATELETS [Concomitant]
     Active Substance: HUMAN PLATELET, ALLOGENIC
     Indication: THROMBOCYTOPENIA
     Route: 065
     Dates: start: 20120525, end: 20120525
  20. OBINUTUZUMAB [Suspect]
     Active Substance: OBINUTUZUMAB
     Indication: NON-HODGKIN^S LYMPHOMA
     Dosage: DATE OF MOST RECENT DOSE OF OBINUTUZUMAB (DOSE CONCENTRATION 4MG/ML; VOLUME: 250 ML) PRIOR TO SERIOU
     Route: 042
     Dates: start: 20120523
  21. ONDANSETRON [Concomitant]
     Active Substance: ONDANSETRON
     Indication: NAUSEA
     Route: 065
     Dates: start: 20120523

REACTIONS (5)
  - Dyspnoea [Recovered/Resolved]
  - Infusion related reaction [Recovered/Resolved]
  - Pulmonary oedema [Recovered/Resolved]
  - Splenomegaly [Recovered/Resolved]
  - Dyspnoea [Recovered/Resolved]

NARRATIVE: CASE EVENT DATE: 20120523
